FAERS Safety Report 4677265-4 (Version None)
Quarter: 2005Q2

REPORT INFORMATION
  Report Type: 
  Country: None (occurrence: None)
  Receive Date: 20050526
  Receipt Date: 20050516
  Transmission Date: 20051028
  Serious: Yes (Hospitalization)
  Sender: FDA-Public Use
  Company Number: 11149

PATIENT
  Age: 74 Year
  Sex: Female

DRUGS (13)
  1. AMIODARONE HCL [Suspect]
     Dosage: 200 MG
     Route: 048
     Dates: start: 20010525
  2. PREDNISONE [Concomitant]
  3. SPIRONOLACTONE [Concomitant]
  4. RAMIPRIL [Concomitant]
  5. SALBUTAMOL/IPRATROPIUM [Concomitant]
  6. FRUSEMIDE [Concomitant]
  7. FLUTICASONE/SALMETEROL [Concomitant]
  8. IRON [Concomitant]
  9. QUININE SULPHATE [Concomitant]
  10. NITROGLYCERIN [Concomitant]
  11. ALENDRONIC ACID [Concomitant]
  12. OMEPRAZOLE [Concomitant]
  13. SALBUTAMOL [Concomitant]

REACTIONS (1)
  - HYPOTHYROIDISM [None]
